FAERS Safety Report 22169031 (Version 2)
Quarter: 2023Q2

REPORT INFORMATION
  Report Type: Report from Study
  Country: US (occurrence: US)
  Receive Date: 20230404
  Receipt Date: 20230502
  Transmission Date: 20230722
  Serious: Yes (Death, Hospitalization)
  Sender: FDA-Public Use
  Company Number: US-ABBVIE-4291914

PATIENT
  Sex: Male

DRUGS (2)
  1. VENCLEXTA [Suspect]
     Active Substance: VENETOCLAX
     Indication: Acute myeloid leukaemia
     Dosage: FORM STRENGTH 70 MILLIGRAM
     Route: 048
     Dates: start: 202301
  2. POSACONAZOLE [Concomitant]
     Active Substance: POSACONAZOLE
     Indication: Neutrophil count decreased

REACTIONS (2)
  - Multiple organ dysfunction syndrome [Fatal]
  - Platelet count decreased [Not Recovered/Not Resolved]

NARRATIVE: CASE EVENT DATE: 20230101
